FAERS Safety Report 9154971 (Version 1)
Quarter: 2013Q1

REPORT INFORMATION
  Report Type: Spontaneous
  Country: AU (occurrence: None)
  Receive Date: 20130208
  Receipt Date: 20130208
  Transmission Date: 20140127
  Serious: Yes (Life-Threatening)
  Sender: FDA-Public Use
  Company Number: FK201300338

PATIENT
  Age: 62 Year
  Sex: Male

DRUGS (16)
  1. SODIUM CHLORIDE 0.9% [Suspect]
     Indication: HAEMODYNAMIC INSTABILITY
     Route: 041
     Dates: start: 20091216, end: 20091216
  2. RAMIPRIL (RAMIPRIL) [Concomitant]
  3. CRESTOR (ROSUVASTATIN) (ROSUVASTATIN) [Concomitant]
  4. MICARDIS (TELMISARTAN) (TELMISARTAN) [Concomitant]
  5. TRITACE (TELMISARTAN) (TELMISARTAN) [Concomitant]
  6. NEXIUM (ESOMEPRAZOLE MAGENSIUM) (ESOMEPRAZOLE MAGNESIUM) [Concomitant]
  7. PANADOL OSTEO (PARACETAMOL) (PARACETAMOL) [Concomitant]
  8. PANADEINE (PANADEINE CO) (PANADEINE CO) [Concomitant]
  9. METOPROLOL (METOPROLOL) (METOPROLOL) [Concomitant]
  10. RANITIDINE (RANITIDINE) [Concomitant]
  11. HEPARIN (HEPARIN) (HEPARIN) [Concomitant]
  12. ASPIRIN (ACETYLSALICYLIC ACID) (ACETYLSALICYLIC ACID) [Concomitant]
  13. CEPHAZOLIN (CEFAZOLIN SODIUM) [Concomitant]
  14. PARACETAMOL (PARACETAMOL) [Concomitant]
  15. POTASSIUM CHLORIDE (POTASSIUM CHLORIDE) [Concomitant]
  16. PROPOFOL (PROPOFOL) (PROPOFOL) [Concomitant]

REACTIONS (1)
  - Cardiogenic shock [None]
